FAERS Safety Report 23765827 (Version 1)
Quarter: 2024Q2

REPORT INFORMATION
  Report Type: Spontaneous
  Country: US (occurrence: US)
  Receive Date: 20240421
  Receipt Date: 20240421
  Transmission Date: 20240716
  Serious: No
  Sender: FDA-Public Use
  Company Number: US-ELI_LILLY_AND_COMPANY-US202404011963

PATIENT
  Age: 53 Year
  Sex: Female

DRUGS (3)
  1. HUMALOG [Suspect]
     Active Substance: INSULIN LISPRO
     Indication: Diabetes mellitus
     Dosage: 20-25 U, PRN (NUMBERS ARE 150 TO GIVE 15 UNITS AND UP)
     Route: 065
  2. METFORMIN [Suspect]
     Active Substance: METFORMIN HYDROCHLORIDE
     Indication: Diabetes mellitus
     Dosage: UNK, UNKNOWN
     Route: 065
  3. SEMGLEE [INSULIN GLARGINE] [Concomitant]
     Indication: Diabetes mellitus
     Dosage: 30 U, UNKNOWN
     Route: 065

REACTIONS (2)
  - Blood glucose increased [Recovering/Resolving]
  - Sluggishness [Unknown]

NARRATIVE: CASE EVENT DATE: 20240325
